FAERS Safety Report 4975156-2 (Version None)
Quarter: 2006Q2

REPORT INFORMATION
  Report Type: 
  Country: None (occurrence: None)
  Receive Date: 20060414
  Receipt Date: 20060414
  Transmission Date: 20061013
  Serious: Yes (Hospitalization)
  Sender: FDA-Public Use
  Company Number: None

PATIENT
  Sex: Male
  Weight: 158.759 kg

DRUGS (2)
  1. ENBREL [Suspect]
     Indication: ARTHRITIS
     Dosage: 50MG 2X WEEK  057
     Dates: start: 20051001, end: 20060301
  2. ENBREL [Suspect]
     Indication: PSORIASIS
     Dosage: 50MG 2X WEEK  057
     Dates: start: 20051001, end: 20060301

REACTIONS (6)
  - BLOOD PRESSURE INCREASED [None]
  - BODY TEMPERATURE INCREASED [None]
  - CELLULITIS [None]
  - CHEST PAIN [None]
  - DYSPNOEA [None]
  - SEPSIS [None]
